FAERS Safety Report 10040255 (Version 2)
Quarter: 2014Q2

REPORT INFORMATION
  Report Type: Spontaneous
  Country: FR (occurrence: FR)
  Receive Date: 20140327
  Receipt Date: 20140416
  Transmission Date: 20141212
  Serious: Yes (Hospitalization)
  Sender: FDA-Public Use
  Company Number: FR-AMGEN-FRASP2014020478

PATIENT
  Age: 53 Year
  Sex: Male

DRUGS (12)
  1. XGEVA [Suspect]
     Indication: PRODUCT USED FOR UNKNOWN INDICATION
     Dosage: 4 MG, 1 IN 1 SINGLE INTAKE
     Route: 051
     Dates: start: 20131025
  2. XTANDI [Suspect]
     Indication: PROSTATE CANCER
     Dosage: 160 MG, QD
     Route: 048
     Dates: start: 20131030, end: 20140120
  3. ENANTONE                           /00726901/ [Suspect]
     Indication: PROSTATE CANCER
     Dosage: 1 DF, Q3MO
     Route: 051
     Dates: start: 20130907, end: 20131130
  4. ZOMETA [Suspect]
     Indication: PRODUCT USED FOR UNKNOWN INDICATION
     Dosage: 120 MG, QMO
     Route: 051
     Dates: start: 2012, end: 20131223
  5. OXYCONTIN [Concomitant]
  6. OXYNORM [Concomitant]
  7. PECFENT [Concomitant]
  8. OMEPRAZOLE [Concomitant]
  9. SECTRAL [Concomitant]
  10. SOLUPRED                           /00016201/ [Concomitant]
  11. NOCTAMIDE [Concomitant]
  12. ZYTIGA [Concomitant]

REACTIONS (4)
  - Cholestasis [Not Recovered/Not Resolved]
  - Anaemia [Not Recovered/Not Resolved]
  - Subdural haematoma [Recovering/Resolving]
  - Thrombocytopenia [Not Recovered/Not Resolved]
